FAERS Safety Report 15578170 (Version 1)
Quarter: 2018Q4

REPORT INFORMATION
  Report Type: Spontaneous
  Country: US (occurrence: US)
  Receive Date: 20181101
  Receipt Date: 20181101
  Transmission Date: 20190205
  Serious: Yes (Hospitalization)
  Sender: FDA-Public Use
  Company Number: None

PATIENT
  Age: 39 Year
  Sex: Male
  Weight: 85.5 kg

DRUGS (4)
  1. MELOXICAM. [Concomitant]
     Active Substance: MELOXICAM
  2. PEPCID [Concomitant]
     Active Substance: FAMOTIDINE
  3. MELOXICAM. [Suspect]
     Active Substance: MELOXICAM
     Indication: NERVE COMPRESSION
     Dosage: ?          QUANTITY:1 TABLET(S);?
     Route: 048
     Dates: start: 20181030, end: 20181030
  4. PREDNISOLONE. [Concomitant]
     Active Substance: PREDNISOLONE

REACTIONS (3)
  - Hypoaesthesia [None]
  - Erythema [None]
  - Drug hypersensitivity [None]

NARRATIVE: CASE EVENT DATE: 20181030
